FAERS Safety Report 22656743 (Version 2)
Quarter: 2023Q2

REPORT INFORMATION
  Report Type: Report from Study
  Country: US (occurrence: US)
  Receive Date: 20230630
  Receipt Date: 20230630
  Transmission Date: 20230722
  Serious: Yes (Hospitalization)
  Sender: FDA-Public Use
  Company Number: US-002147023-NVSC2023US148540

PATIENT
  Sex: Female
  Weight: 82.55 kg

DRUGS (2)
  1. TREPROSTINIL [Suspect]
     Active Substance: TREPROSTINIL
     Indication: Pulmonary arterial hypertension
     Dosage: UNK, CONT (30 NG/KG/MIN AT RATE OF 1.9 ML PER HOUR
     Route: 042
     Dates: start: 20230623
  2. SILDENAFIL CITRATE [Concomitant]
     Active Substance: SILDENAFIL CITRATE
     Indication: Product used for unknown indication
     Route: 065

REACTIONS (7)
  - Dyspnoea [Unknown]
  - Insomnia [Unknown]
  - Tremor [Unknown]
  - Diarrhoea [Unknown]
  - Muscle spasms [Unknown]
  - Headache [Unknown]
  - Arthralgia [Unknown]
